FAERS Safety Report 9302239 (Version 1)
Quarter: 2013Q2

REPORT INFORMATION
  Report Type: Report from Study
  Country: US (occurrence: US)
  Receive Date: 20130522
  Receipt Date: 20130522
  Transmission Date: 20140414
  Serious: Yes (Other)
  Sender: FDA-Public Use
  Company Number: US-009507513-1305USA011031

PATIENT
  Age: 66 Year
  Sex: Female

DRUGS (11)
  1. FOSAMAX [Suspect]
     Dosage: UNK
     Route: 048
  2. HUMIRA [Suspect]
     Indication: RHEUMATOID ARTHRITIS
     Dosage: 40 MG, BIW
     Dates: start: 200702
  3. TRAMADOL HYDROCHLORIDE [Concomitant]
     Indication: PAIN
     Dosage: 50 MG, BID
  4. LEVOTHYROXINE SODIUM [Concomitant]
     Indication: THYROID DISORDER
     Dosage: 75 MICROGRAM, QD
     Route: 048
  5. VALSARTAN [Concomitant]
     Indication: BLOOD PRESSURE ABNORMAL
     Dosage: 160-25 MG DAILY
  6. FOLIC ACID [Concomitant]
     Dosage: 800 MICROGRAM, QD
  7. LEKOVIT CA [Concomitant]
     Dosage: 600/200 MG TWICE A DAY
  8. ASPIRIN [Concomitant]
     Dosage: 81 MG, QD
  9. VITAMINS (UNSPECIFIED) [Concomitant]
     Dosage: UNK, QD
  10. METHOTREXATE [Concomitant]
     Dosage: 15 MG, EVERY MONDAY
  11. ALLEGRA [Concomitant]
     Indication: HYPERSENSITIVITY
     Dosage: 180 MG DAILY AS NEEDED

REACTIONS (6)
  - Femur fracture [Unknown]
  - Gastrooesophageal reflux disease [Unknown]
  - Bladder disorder [Unknown]
  - Anxiety [Unknown]
  - Nasal congestion [Unknown]
  - Rhinorrhoea [Unknown]
